FAERS Safety Report 24535416 (Version 2)
Quarter: 2024Q4

REPORT INFORMATION
  Report Type: Spontaneous
  Country: NL (occurrence: NL)
  Receive Date: 20241022
  Receipt Date: 20241113
  Transmission Date: 20250114
  Serious: Yes (Other)
  Sender: SK LIFE SCIENCE
  Company Number: NL-ACRAF SpA-2024-036043

PATIENT

DRUGS (13)
  1. XCOPRI [Suspect]
     Active Substance: CENOBAMATE
     Indication: Partial seizures
     Dosage: 1DAILY DOSE 200MG (1 IN 1 D)
     Route: 065
     Dates: start: 20240104
  2. XCOPRI [Suspect]
     Active Substance: CENOBAMATE
     Indication: Drug resistance
     Dosage: 1DAILY DOSE 250MG (1 IN 1 D)
     Route: 065
     Dates: start: 20240314
  3. XCOPRI [Suspect]
     Active Substance: CENOBAMATE
     Dosage: 250MG/DAY OD (1 IN 1 D)
     Route: 065
     Dates: start: 202310
  4. ASPIRIN [Concomitant]
     Active Substance: ASPIRIN
     Indication: Product used for unknown indication
     Dosage: 1DD 80MG (1 IN 1 D)
     Route: 065
  5. HYDROCHLOROTHIAZIDE [Concomitant]
     Active Substance: HYDROCHLOROTHIAZIDE
     Indication: Product used for unknown indication
     Dosage: 1DD 12.5MG (1 IN 1 D)
     Route: 065
  6. AMLODIPINE [Concomitant]
     Active Substance: AMLODIPINE BESYLATE
     Indication: Product used for unknown indication
     Dosage: 1DD 10MG (1 IN 1 D)
     Route: 065
  7. PURINETHOL [Concomitant]
     Active Substance: MERCAPTOPURINE
     Indication: Product used for unknown indication
     Dosage: 1DD50MG (1 IN 1 D)
     Route: 065
  8. LEVETIRACETAM [Concomitant]
     Active Substance: LEVETIRACETAM
     Indication: Product used for unknown indication
     Dosage: 2DD1000MG (2 IN 1 D)
     Route: 065
  9. LACOSAMIDE [Concomitant]
     Active Substance: LACOSAMIDE
     Indication: Product used for unknown indication
     Dosage: 2DD 50MG (2 IN 1 D)
     Route: 065
  10. CHLORAMPHENICOL [Concomitant]
     Active Substance: CHLORAMPHENICOL
     Indication: Product used for unknown indication
     Dosage: 10MG
     Route: 065
  11. MONOFREE DEXAMETHASON [DEXAMETHASONE] [Concomitant]
     Indication: Product used for unknown indication
     Dosage: 1MG/ML
     Route: 065
  12. ARTELAC EDO [Concomitant]
     Indication: Product used for unknown indication
     Dosage: 3.2MG/ML
     Route: 065
  13. DURATEARS Z [Concomitant]
     Indication: Product used for unknown indication
     Dosage: (3.5 GM)
     Route: 065

REACTIONS (1)
  - Lymphopenia [Unknown]
